FAERS Safety Report 20649080 (Version 1)
Quarter: 2022Q1

REPORT INFORMATION
  Report Type: Spontaneous
  Country: US (occurrence: None)
  Receive Date: 20220328
  Receipt Date: 20220328
  Transmission Date: 20220423
  Serious: No
  Sender: FDA-Public Use
  Company Number: None

PATIENT
  Age: 69 Year
  Sex: Female
  Weight: 47.17 kg

DRUGS (2)
  1. XELODA [Suspect]
     Active Substance: CAPECITABINE
     Indication: Gallbladder cancer
     Dosage: OTHER QUANTITY : 1500-1000;?FREQUENCY : TWICE A DAY;?
     Route: 048
     Dates: start: 20220126
  2. IMMUNICARE ORAL CAPSULE [Concomitant]

REACTIONS (1)
  - Drug ineffective [None]
